FAERS Safety Report 14988395 (Version 2)
Quarter: 2018Q3

REPORT INFORMATION
  Report Type: Report from Study
  Country: UA (occurrence: UA)
  Receive Date: 20180608
  Receipt Date: 20180730
  Transmission Date: 20181010
  Serious: Yes (Life-Threatening, Other)
  Sender: FDA-Public Use
  Company Number: UA-PFIZER INC-2018233720

PATIENT
  Age: 11 Year
  Sex: Female

DRUGS (11)
  1. APIXABAN [Suspect]
     Active Substance: APIXABAN
     Dosage: 24 ML, UNK
     Route: 048
     Dates: start: 20180403, end: 20180410
  2. APIXABAN [Suspect]
     Active Substance: APIXABAN
     Indication: EMBOLISM VENOUS
     Dosage: 48 ML, UNK
     Route: 048
     Dates: start: 20180219, end: 20180525
  3. APIXABAN [Suspect]
     Active Substance: APIXABAN
     Dosage: 24 ML, UNK
     Route: 048
     Dates: start: 20180226, end: 20180401
  4. DEXAMETHASONE. [Suspect]
     Active Substance: DEXAMETHASONE
     Dosage: UNK
     Route: 065
     Dates: start: 20180510, end: 20180514
  5. APIXABAN [Suspect]
     Active Substance: APIXABAN
     Dosage: 24 ML, UNK
     Route: 048
     Dates: start: 20180503, end: 20180507
  6. VINCRISTINE SULFATE. [Suspect]
     Active Substance: VINCRISTINE SULFATE
     Dosage: UNK
     Route: 065
     Dates: start: 20180515, end: 20180515
  7. VINCRISTINE SULFATE. [Suspect]
     Active Substance: VINCRISTINE SULFATE
     Dosage: UNK
     Route: 065
     Dates: start: 20180510, end: 20180510
  8. METHOTREXATE SODIUM. [Suspect]
     Active Substance: METHOTREXATE SODIUM
     Dosage: UNK
     Route: 065
     Dates: start: 20180510, end: 20180511
  9. DOXORUBICIN HCL [Suspect]
     Active Substance: DOXORUBICIN HYDROCHLORIDE
     Dosage: UNK
     Route: 065
     Dates: start: 20180514, end: 20180514
  10. IFOSFAMIDE. [Suspect]
     Active Substance: IFOSFAMIDE
     Dosage: UNK
     Route: 065
     Dates: start: 20180511, end: 20180513
  11. APIXABAN [Suspect]
     Active Substance: APIXABAN
     Dosage: 24 ML, UNK
     Route: 048
     Dates: start: 20180413, end: 20180426

REACTIONS (2)
  - Toxic shock syndrome [Recovered/Resolved]
  - Bone marrow failure [Recovered/Resolved]

NARRATIVE: CASE EVENT DATE: 20180529
